FAERS Safety Report 15139389 (Version 1)
Quarter: 2018Q3

REPORT INFORMATION
  Report Type: Report from Study
  Country: HN (occurrence: HN)
  Receive Date: 20180713
  Receipt Date: 20180713
  Transmission Date: 20181010
  Serious: Yes (Hospitalization)
  Sender: FDA-Public Use
  Company Number: PHHY2016HN173062

PATIENT
  Age: 65 Year
  Sex: Female

DRUGS (1)
  1. EXFORGE [Suspect]
     Active Substance: AMLODIPINE BESYLATE\VALSARTAN
     Indication: PRODUCT USED FOR UNKNOWN INDICATION
     Dosage: 1 DF (AMLODIPINE 10 MG, VALSARTAN 320 MG), UNK
     Route: 065

REACTIONS (4)
  - Headache [Unknown]
  - Eye pain [Unknown]
  - Blood pressure increased [Unknown]
  - Cataract [Unknown]
